FAERS Safety Report 6315965-0 (Version None)
Quarter: 2009Q3

REPORT INFORMATION
  Report Type: 
  Country: None (occurrence: None)
  Receive Date: 20090820
  Receipt Date: 20090126
  Transmission Date: 20100115
  Serious: No
  Sender: FDA-Public Use
  Company Number: US-KINGPHARMUSA00001-K200900085

PATIENT
  Age: 64 Year
  Sex: Female
  Weight: 81.633 kg

DRUGS (10)
  1. CYTOMEL [Suspect]
     Indication: THYROIDECTOMY
     Dosage: 25 MCG, QD
     Route: 048
     Dates: start: 20090119, end: 20090124
  2. CALCIUM [Concomitant]
     Dosage: 600 MG, BID
  3. ZOCOR [Concomitant]
     Indication: BLOOD CHOLESTEROL INCREASED
     Dosage: UNK
  4. ATENOLOL [Concomitant]
     Indication: HYPERTENSION
     Dosage: UNK
  5. LISINOPRIL HYDROCHLORTHIAZID [Concomitant]
     Indication: HYPERTENSION
     Dosage: UNK
  6. ZOLOFT [Concomitant]
     Indication: DEPRESSION
     Dosage: 25 MG, QD
  7. MULTIVITAMIN                       /00831701/ [Concomitant]
     Dosage: UNK
  8. VITAMIN D3 [Concomitant]
     Dosage: UNK
  9. FISH OIL [Concomitant]
     Dosage: UNK
  10. GLUCOSAM HCL/CHONDROIT SULF/MANGANESE ASCORB [Concomitant]
     Dosage: UNK

REACTIONS (1)
  - RASH [None]
